FAERS Safety Report 16471084 (Version 1)
Quarter: 2019Q2

REPORT INFORMATION
  Report Type: Spontaneous
  Country: BR (occurrence: BR)
  Receive Date: 20190624
  Receipt Date: 20190624
  Transmission Date: 20190711
  Serious: Yes (Other)
  Sender: FDA-Public Use
  Company Number: BR-ASTRAZENECA-2019SE90127

PATIENT
  Sex: Female

DRUGS (1)
  1. SYMBICORT [Suspect]
     Active Substance: BUDESONIDE\FORMOTEROL FUMARATE DIHYDRATE
     Indication: COUGH
     Dosage: 160/4.5 MCG, 1 PUFF, TWO TIMES A DAY
     Route: 055
     Dates: start: 20190320, end: 20190518

REACTIONS (2)
  - Off label use [Recovered/Resolved]
  - Retinal artery occlusion [Unknown]

NARRATIVE: CASE EVENT DATE: 20190320
